FAERS Safety Report 18548714 (Version 2)
Quarter: 2020Q4

REPORT INFORMATION
  Report Type: Spontaneous
  Country: HU (occurrence: HU)
  Receive Date: 20201126
  Receipt Date: 20201203
  Transmission Date: 20210114
  Serious: No
  Sender: FDA-Public Use
  Company Number: HU-BIOGEN-2020BI00950100

PATIENT
  Age: 1 Year
  Sex: Female

DRUGS (2)
  1. SPINRAZA [Suspect]
     Active Substance: NUSINERSEN
     Indication: SPINAL MUSCULAR ATROPHY
     Dosage: 12 MG/5ML. FIRST 3 DOSES WITH 14 DAY INTERVAL, 0,14, 28; THE 4TH DOSE AT 63, THEN EVERY 4 MONTHS
     Route: 037
  2. SPINRAZA [Suspect]
     Active Substance: NUSINERSEN
     Dosage: 12 MG/5ML
     Route: 037
     Dates: start: 20201120, end: 20201120

REACTIONS (3)
  - Body temperature increased [Unknown]
  - Catarrh [Unknown]
  - Teething [Unknown]

NARRATIVE: CASE EVENT DATE: 20201122
